FAERS Safety Report 16526000 (Version 1)
Quarter: 2019Q3

REPORT INFORMATION
  Report Type: Other
  Country: DE (occurrence: DE)
  Receive Date: 20190703
  Receipt Date: 20190703
  Transmission Date: 20191004
  Serious: No
  Sender: FDA-Public Use
  Company Number: DE-LUPIN PHARMACEUTICALS INC.-2018-04408

PATIENT
  Age: 71 Year
  Sex: Male
  Weight: 73 kg

DRUGS (2)
  1. SIMVASTATIN. [Suspect]
     Active Substance: SIMVASTATIN
     Indication: LOW DENSITY LIPOPROTEIN INCREASED
     Dosage: 20 MG, QD
     Route: 065
     Dates: start: 201308, end: 201503
  2. ATORVASTATIN [Suspect]
     Active Substance: ATORVASTATIN
     Indication: LOW DENSITY LIPOPROTEIN INCREASED
     Dosage: 10 MG, QD
     Route: 048
     Dates: start: 201510, end: 201511

REACTIONS (2)
  - Myalgia [Recovered/Resolved]
  - Abdominal discomfort [Recovered/Resolved]

NARRATIVE: CASE EVENT DATE: 201503
